FAERS Safety Report 4483896-7 (Version None)
Quarter: 2004Q4

REPORT INFORMATION
  Report Type: 
  Country: None (occurrence: None)
  Receive Date: 20041022
  Receipt Date: 20041022
  Transmission Date: 20050328
  Serious: Yes (Life-Threatening, Hospitalization)
  Sender: FDA-Public Use
  Company Number: None

PATIENT
  Sex: Male
  Weight: 76.3 kg

DRUGS (6)
  1. ETOPOSIDE [Suspect]
     Indication: GERM CELL CANCER
     Dosage: 180 MG IV X 3D
     Route: 042
     Dates: start: 20040911, end: 20040913
  2. CARBOPLATIN [Suspect]
     Dosage: 1200 MG IV X 2D
     Route: 042
     Dates: start: 20040911
  3. IFOSFAMIDE [Suspect]
     Indication: GERM CELL CANCER
     Dosage: 3564 MG IV X 5D
     Route: 042
     Dates: start: 20041001, end: 20041005
  4. ETOPOSIDE [Suspect]
     Dosage: 178 MG IV X 5D
     Route: 042
     Dates: start: 20041001, end: 20041005
  5. NEUPOGEN [Concomitant]
  6. TOPAMAX [Concomitant]

REACTIONS (2)
  - DEPRESSED LEVEL OF CONSCIOUSNESS [None]
  - TREMOR [None]
